FAERS Safety Report 16471624 (Version 1)
Quarter: 2019Q2

REPORT INFORMATION
  Report Type: Spontaneous
  Country: GB (occurrence: GB)
  Receive Date: 20190624
  Receipt Date: 20190624
  Transmission Date: 20190711
  Serious: Yes (Life-Threatening, Hospitalization, Disabling, Other)
  Sender: FDA-Public Use
  Company Number: GB-TEVA-2019-GB-1067016

PATIENT
  Age: 23 Year
  Sex: Female
  Weight: 63.5 kg

DRUGS (1)
  1. NITROFURANTOIN. [Suspect]
     Active Substance: NITROFURANTOIN
     Indication: URINARY TRACT INFECTION
     Route: 048
     Dates: start: 20141020, end: 20150523

REACTIONS (5)
  - Nausea [Unknown]
  - Vomiting [Unknown]
  - Autoimmune hepatitis [Not Recovered/Not Resolved]
  - Jaundice [Unknown]
  - Night sweats [Unknown]

NARRATIVE: CASE EVENT DATE: 20181117
